FAERS Safety Report 6999757-5 (Version None)
Quarter: 2010Q3

REPORT INFORMATION
  Report Type: 
  Country: None (occurrence: None)
  Receive Date: 20100920
  Receipt Date: 20100129
  Transmission Date: 20110219
  Serious: No
  Sender: FDA-Public Use
  Company Number: US-ASTRAZENECA-2009SE30587

PATIENT
  Age: 82 Year
  Sex: Female
  Weight: 79.4 kg

DRUGS (4)
  1. SEROQUEL [Suspect]
     Indication: ANXIETY
     Route: 048
     Dates: start: 20070101
  2. SEROQUEL [Suspect]
     Route: 048
     Dates: start: 20080101
  3. COUMADIN [Concomitant]
  4. ARICEPT [Concomitant]

REACTIONS (7)
  - DRY MOUTH [None]
  - HYPERSOMNIA [None]
  - INCORRECT DOSE ADMINISTERED [None]
  - INCREASED APPETITE [None]
  - LETHARGY [None]
  - URINARY TRACT INFECTION [None]
  - WEIGHT INCREASED [None]
